FAERS Safety Report 20024441 (Version 1)
Quarter: 2021Q4

REPORT INFORMATION
  Report Type: Spontaneous
  Country: JP (occurrence: None)
  Receive Date: 20211102
  Receipt Date: 20211102
  Transmission Date: 20220303
  Serious: Yes (Other)
  Sender: FDA-Public Use
  Company Number: 2021A789588

PATIENT
  Age: 58 Year
  Sex: Male

DRUGS (2)
  1. TAGRISSO [Suspect]
     Active Substance: OSIMERTINIB
     Indication: Non-small cell lung cancer
     Route: 048
  2. BEVACIZUMAB/PACLITAXEL/CARBOPLATIN [Concomitant]

REACTIONS (2)
  - Metastases to pleura [Unknown]
  - Pneumonia [Unknown]
